FAERS Safety Report 18385017 (Version 5)
Quarter: 2020Q4

REPORT INFORMATION
  Report Type: Spontaneous
  Country: PT (occurrence: PT)
  Receive Date: 20201015
  Receipt Date: 20201119
  Transmission Date: 20210114
  Serious: Yes (Hospitalization, Other)
  Sender: FDA-Public Use
  Company Number: PT-AUROBINDO-AUR-APL-2020-050075

PATIENT
  Age: 73 Year
  Sex: Female

DRUGS (5)
  1. APIXABAN [Concomitant]
     Active Substance: APIXABAN
     Indication: ATRIAL FIBRILLATION
     Dosage: UNK
     Route: 048
  2. EZETIMIBE + SIMVASTATIN [Concomitant]
     Active Substance: EZETIMIBE\SIMVASTATIN
     Indication: DYSLIPIDAEMIA
     Dosage: UNK
     Route: 048
  3. OLMESARTAN [Suspect]
     Active Substance: OLMESARTAN
     Indication: HYPERTENSION
     Dosage: UNK
     Route: 048
  4. LERCANIDIPINA [Concomitant]
     Active Substance: LERCANIDIPINE
     Indication: HYPERTENSION
     Dosage: UNK
     Route: 048
  5. SIMVASTATIN. [Concomitant]
     Active Substance: SIMVASTATIN
     Indication: PRODUCT USED FOR UNKNOWN INDICATION
     Dosage: UNK
     Route: 065

REACTIONS (13)
  - Diarrhoea [Recovered/Resolved]
  - Acute kidney injury [Recovered/Resolved]
  - Malabsorption [Unknown]
  - Sprue-like enteropathy [Recovered/Resolved]
  - Gastroenteritis [Unknown]
  - Weight decreased [Recovered/Resolved]
  - Malnutrition [Recovered/Resolved]
  - Inflammatory bowel disease [Unknown]
  - Abdominal pain [Recovered/Resolved]
  - Intestinal villi atrophy [Recovered/Resolved]
  - Ileal ulcer [Recovered/Resolved]
  - Renal impairment [Recovered/Resolved]
  - Gastrointestinal ulcer [Unknown]
